FAERS Safety Report 7676142-4 (Version None)
Quarter: 2011Q3

REPORT INFORMATION
  Report Type: 
  Country: None (occurrence: None)
  Receive Date: 20110811
  Receipt Date: 20110801
  Transmission Date: 20111222
  Serious: Yes (Hospitalization)
  Sender: FDA-Public Use
  Company Number: US-JNJFOC-20110104607

PATIENT
  Sex: Female
  Weight: 36 kg

DRUGS (2)
  1. INFLIXIMAB, RECOMBINANT [Suspect]
     Route: 042
     Dates: start: 20031230
  2. INFLIXIMAB, RECOMBINANT [Suspect]
     Indication: CROHN'S DISEASE
     Dosage: TOTAL 6 INFUSIONS
     Route: 042
     Dates: start: 20040116, end: 20060914

REACTIONS (3)
  - HYPONATRAEMIA [None]
  - DEHYDRATION [None]
  - VIRAL UPPER RESPIRATORY TRACT INFECTION [None]
